FAERS Safety Report 23468332 (Version 3)
Quarter: 2024Q1

REPORT INFORMATION
  Report Type: Spontaneous
  Country: GB (occurrence: GB)
  Receive Date: 20240202
  Receipt Date: 20240327
  Transmission Date: 20240410
  Serious: Yes (Disabling, Other)
  Sender: FDA-Public Use
  Company Number: None

PATIENT
  Age: 84 Year
  Sex: Female
  Weight: 60 kg

DRUGS (3)
  1. MEMANTINE [Suspect]
     Active Substance: MEMANTINE
     Indication: Mixed dementia
     Dosage: 10MG DAILY;
     Dates: start: 20231108, end: 20240108
  2. OLANZAPINE [Concomitant]
     Active Substance: OLANZAPINE
     Indication: Psychotic disorder
     Dates: start: 20230910
  3. SERTRALINE [Concomitant]
     Active Substance: SERTRALINE HYDROCHLORIDE
     Indication: Major depression
     Dates: start: 20230910

REACTIONS (16)
  - Hallucination [Unknown]
  - Hallucinations, mixed [Recovered/Resolved]
  - Medication error [Unknown]
  - Anger [Recovering/Resolving]
  - Anxiety [Recovering/Resolving]
  - Condition aggravated [Recovering/Resolving]
  - Confusional state [Recovered/Resolved]
  - Delusion [Recovered/Resolved]
  - Asthenia [Recovering/Resolving]
  - Personality change [Recovering/Resolving]
  - Tremor [Recovered/Resolved]
  - Somnolence [Recovering/Resolving]
  - Social avoidant behaviour [Recovering/Resolving]
  - Aggression [Recovering/Resolving]
  - Agitation [Recovering/Resolving]
  - Paranoia [Recovering/Resolving]

NARRATIVE: CASE EVENT DATE: 20231201
